FAERS Safety Report 8136566-8 (Version None)
Quarter: 2012Q1

REPORT INFORMATION
  Report Type: 
  Country: None (occurrence: None)
  Receive Date: 20120214
  Receipt Date: 20120213
  Transmission Date: 20120608
  Serious: Yes (Death, Hospitalization)
  Sender: FDA-Public Use
  Company Number: DE-ROCHE-750306

PATIENT
  Sex: Female
  Weight: 59 kg

DRUGS (11)
  1. TORSEMIDE [Concomitant]
  2. INSULIN [Concomitant]
  3. XELODA [Suspect]
     Indication: BREAST CANCER
     Dosage: ROUTE AND DOSE: AS PER PROTOCOL, DATE OF LAST DOSE PRIOR TO SAE: 19 FEB 2011, TERMINATED
     Route: 048
  4. METOCLOPRAMIDE [Concomitant]
     Dosage: REPORTED AS: METOPROLOL 35, DAILY DOSE: 1X
  5. AVASTIN [Suspect]
     Indication: BREAST CANCER
     Dosage: ON DAY 1, ROUTE AND DOSE: AS PER PROTOCOL, DATE OF LAST DOSE PRIOR TO SAE: 15 FEB 2011,TERMINATED
     Route: 042
  6. IRBESARTAN [Concomitant]
     Dosage: REPORTED AS: APROVEL 300, DAILY DOSE: 1X
  7. LEVOTHYROXINE SODIUM [Concomitant]
  8. PANTEXOL [Concomitant]
     Dosage: PANTEXOL 40
  9. MOVIPREP [Concomitant]
  10. IRBESARTAN [Concomitant]
     Dosage: DRUG: COAPROVEL 300/125, DAILY DOSE: 1-0-1 DOSE FORM
  11. SPIRIVA [Concomitant]

REACTIONS (3)
  - ASTHENIA [None]
  - SUBILEUS [None]
  - GENERAL PHYSICAL HEALTH DETERIORATION [None]
